FAERS Safety Report 20112095 (Version 2)
Quarter: 2021Q4

REPORT INFORMATION
  Report Type: Spontaneous
  Country: KR (occurrence: KR)
  Receive Date: 20211125
  Receipt Date: 20211213
  Transmission Date: 20220303
  Serious: Yes (Other)
  Sender: FDA-Public Use
  Company Number: KR-ASTELLAS-2021US044849

PATIENT
  Age: 74 Year
  Sex: Male

DRUGS (3)
  1. MIRABEGRON [Suspect]
     Active Substance: MIRABEGRON
     Indication: Benign prostatic hyperplasia
     Dosage: 50 MG, ONCE DAILY (AFTER BREAKFAST)
     Route: 048
     Dates: start: 20210820, end: 20211201
  2. MIRABEGRON [Suspect]
     Active Substance: MIRABEGRON
     Indication: Hypertonic bladder
     Dosage: 50 MG, ONCE DAILY (AFTER LUNCH)
     Route: 048
     Dates: start: 20211202
  3. CELCOBREX [Concomitant]
     Indication: Arthralgia
     Dosage: UNK UNK, UNKNOWN FREQ.
     Route: 065

REACTIONS (9)
  - Diabetes mellitus [Unknown]
  - General physical health deterioration [Not Recovered/Not Resolved]
  - Lip dry [Recovering/Resolving]
  - Skin exfoliation [Recovering/Resolving]
  - Decreased appetite [Not Recovered/Not Resolved]
  - Dyspepsia [Not Recovered/Not Resolved]
  - Drug ineffective [Unknown]
  - Product use in unapproved indication [Unknown]
  - Off label use [Unknown]

NARRATIVE: CASE EVENT DATE: 20210801
